FAERS Safety Report 5547491-0 (Version None)
Quarter: 2007Q4

REPORT INFORMATION
  Report Type: 
  Country: None (occurrence: None)
  Receive Date: 20071128
  Receipt Date: 20070829
  Transmission Date: 20080405
  Serious: Yes (Other)
  Sender: FDA-Public Use
  Company Number: 2007037163

PATIENT
  Sex: Male
  Weight: 170.1 kg

DRUGS (6)
  1. LIPITOR [Suspect]
     Indication: HYPERLIPIDAEMIA
     Dosage: 20 MG (20 MG 1 IN 1 D)
     Dates: start: 20000101, end: 20060101
  2. TOPROL-XL [Concomitant]
  3. BENAZEPRIL HCL [Concomitant]
  4. MULTIVITAMIN AND MINERAL SUPPLEMENT (MINERALS NOS, VITAMINS NOS) [Concomitant]
  5. ACETYLSALICYLIC ACID SRT [Concomitant]
  6. HUMIBID (GUAIFENESIN) [Concomitant]

REACTIONS (1)
  - LIVER FUNCTION TEST ABNORMAL [None]
